FAERS Safety Report 5816185-6 (Version None)
Quarter: 2008Q3

REPORT INFORMATION
  Report Type: 
  Country: None (occurrence: None)
  Receive Date: 20080721
  Receipt Date: 20080717
  Transmission Date: 20090109
  Serious: Yes (Other)
  Sender: FDA-Public Use
  Company Number: A0738187A

PATIENT
  Age: 50 Year
  Sex: Female

DRUGS (2)
  1. VALTREX [Suspect]
     Indication: GENITAL HERPES
     Dosage: 500MG PER DAY
     Route: 048
     Dates: start: 20080612, end: 20080613
  2. NONE [Concomitant]

REACTIONS (5)
  - DYSPNOEA [None]
  - HEADACHE [None]
  - OROPHARYNGEAL PAIN [None]
  - RASH [None]
  - SWELLING [None]
